FAERS Safety Report 14743788 (Version 1)
Quarter: 2018Q2

REPORT INFORMATION
  Report Type: Spontaneous
  Country: US (occurrence: US)
  Receive Date: 20180410
  Receipt Date: 20180410
  Transmission Date: 20180711
  Serious: No
  Sender: FDA-Public Use
  Company Number: US-ELI_LILLY_AND_COMPANY-US201804001526

PATIENT
  Age: 61 Year
  Sex: Female

DRUGS (3)
  1. METFORMIN [Concomitant]
     Active Substance: METFORMIN HYDROCHLORIDE
     Indication: TYPE 2 DIABETES MELLITUS
     Dosage: 500 MG, BID
     Route: 065
  2. TRULICITY [Suspect]
     Active Substance: DULAGLUTIDE
     Indication: PRODUCT USED FOR UNKNOWN INDICATION
     Dosage: 0.75 MG, WEEKLY (1/W)
     Route: 065
     Dates: start: 20180319
  3. TRULICITY [Suspect]
     Active Substance: DULAGLUTIDE
     Dosage: 0.75 MG, WEEKLY (1/W)
     Route: 065
     Dates: start: 20180326

REACTIONS (14)
  - Muscle spasms [Not Recovered/Not Resolved]
  - Product storage error [Unknown]
  - Feeling jittery [Unknown]
  - Chills [Unknown]
  - Nausea [Not Recovered/Not Resolved]
  - Asthenia [Not Recovered/Not Resolved]
  - Drug dispensing error [Unknown]
  - Heart rate increased [Unknown]
  - Agitation [Unknown]
  - Hot flush [Unknown]
  - Expired product administered [Unknown]
  - Vomiting [Not Recovered/Not Resolved]
  - Malaise [Unknown]
  - Dyspnoea [Unknown]

NARRATIVE: CASE EVENT DATE: 20180319
